FAERS Safety Report 20709797 (Version 2)
Quarter: 2022Q2

REPORT INFORMATION
  Report Type: Spontaneous
  Country: US (occurrence: US)
  Receive Date: 20220414
  Receipt Date: 20220613
  Transmission Date: 20220721
  Serious: Yes (Life-Threatening, Hospitalization, Other)
  Sender: FDA-Public Use
  Company Number: US-PFIZER INC-202200525248

PATIENT
  Age: 57 Year
  Sex: Female
  Weight: 117.91 kg

DRUGS (1)
  1. ALPRAZOLAM [Suspect]
     Active Substance: ALPRAZOLAM
     Dosage: UNK

REACTIONS (18)
  - Hypersensitivity [Not Recovered/Not Resolved]
  - Dyspnoea [Unknown]
  - Intrusive thoughts [Not Recovered/Not Resolved]
  - Decreased appetite [Not Recovered/Not Resolved]
  - Mammoplasty [Unknown]
  - Anosmia [Unknown]
  - Illness [Unknown]
  - Asthenia [Unknown]
  - Nausea [Unknown]
  - Withdrawal syndrome [Unknown]
  - Gait inability [Unknown]
  - Somnolence [Unknown]
  - Amnesia [Unknown]
  - Palpitations [Unknown]
  - Headache [Unknown]
  - Chest pain [Unknown]
  - Fatigue [Unknown]
  - Malaise [Not Recovered/Not Resolved]
